FAERS Safety Report 4760594-3 (Version None)
Quarter: 2005Q3

REPORT INFORMATION
  Report Type: 
  Country: None (occurrence: None)
  Receive Date: 20050826
  Receipt Date: 20050126
  Transmission Date: 20060218
  Serious: Yes (Death, Other)
  Sender: FDA-Public Use
  Company Number: USA-2004-0017108

PATIENT
  Age: 46 Year
  Sex: Female
  Weight: 81.6 kg

DRUGS (10)
  1. OXYCONTIN [Suspect]
     Indication: PAIN
     Dosage: 80 MG, Q12H, ORAL
     Route: 048
     Dates: start: 20040917, end: 20040917
  2. PERCOCET [Suspect]
     Indication: PAIN
     Dosage: 1 TABLET, Q3H, ORAL
     Route: 048
     Dates: start: 20040917, end: 20040917
  3. SEROQUEL [Concomitant]
  4. ESTROGEN NOS [Concomitant]
  5. VALIUM [Concomitant]
  6. METHYLPREDNISOLONE [Concomitant]
  7. ONDANSETRON [Concomitant]
  8. PANTOPRAZOLE [Concomitant]
  9. DEMEROL [Concomitant]
  10. QUETIAPINE FUMARATE [Concomitant]

REACTIONS (4)
  - DRUG ABUSER [None]
  - DRUG TOLERANCE [None]
  - OVERDOSE [None]
  - RESPIRATORY ARREST [None]
